FAERS Safety Report 10710411 (Version 1)
Quarter: 2015Q1

REPORT INFORMATION
  Report Type: Spontaneous
  Country: US (occurrence: US)
  Receive Date: 20150114
  Receipt Date: 20150114
  Transmission Date: 20150721
  Serious: No
  Sender: FDA-Public Use
  Company Number: US-009507513-1501USA003188

PATIENT
  Age: 40 Year
  Sex: Female
  Weight: 66.67 kg

DRUGS (3)
  1. TYLENOL [Concomitant]
     Active Substance: ACETAMINOPHEN
     Dosage: UNK
  2. NEXPLANON [Suspect]
     Active Substance: ETONOGESTREL
     Indication: CONTRACEPTION
     Dosage: UNK
     Route: 059
     Dates: start: 201404
  3. MOTRIN [Concomitant]
     Active Substance: IBUPROFEN
     Dosage: UNK

REACTIONS (5)
  - Headache [Unknown]
  - Implant site pain [Unknown]
  - Fatigue [Unknown]
  - Menstrual disorder [Unknown]
  - Menorrhagia [Unknown]

NARRATIVE: CASE EVENT DATE: 201412
